FAERS Safety Report 16306220 (Version 2)
Quarter: 2019Q2

REPORT INFORMATION
  Report Type: Spontaneous
  Country: DE (occurrence: DE)
  Receive Date: 20190513
  Receipt Date: 20190528
  Transmission Date: 20190711
  Serious: Yes (Other)
  Sender: FDA-Public Use
  Company Number: DE-BAYER-2019-090941

PATIENT
  Sex: Male
  Weight: 105 kg

DRUGS (5)
  1. LISINOPRIL COMP [Concomitant]
     Active Substance: HYDROCHLOROTHIAZIDE\LISINOPRIL
     Dosage: 0.5 DF, OM
  2. DOTAREM [Concomitant]
     Active Substance: GADOTERATE MEGLUMINE
     Indication: NUCLEAR MAGNETIC RESONANCE IMAGING
     Dosage: UNK UNK, ONCE
     Dates: start: 20171006, end: 20171006
  3. GADOVIST [Suspect]
     Active Substance: GADOBUTROL
     Indication: NUCLEAR MAGNETIC RESONANCE IMAGING
     Dosage: UNK UNK, ONCE
     Dates: start: 20180123, end: 20180123
  4. LISINOPRIL COMP [Concomitant]
     Active Substance: HYDROCHLOROTHIAZIDE\LISINOPRIL
     Dosage: 0.5 DF, HS
  5. METOPROLOL SUCCINATE. [Concomitant]
     Active Substance: METOPROLOL SUCCINATE
     Dosage: 47.5 MG, QD

REACTIONS (10)
  - Neuropathy peripheral [None]
  - Tongue discomfort [None]
  - Headache [None]
  - Myalgia [None]
  - Asthma [None]
  - Arthralgia [None]
  - Pain [None]
  - Insomnia [None]
  - Skin burning sensation [None]
  - Histamine intolerance [None]

NARRATIVE: CASE EVENT DATE: 201901
